FAERS Safety Report 4562429-0 (Version None)
Quarter: 2005Q1

REPORT INFORMATION
  Report Type: 
  Country: None (occurrence: None)
  Receive Date: 20050113
  Receipt Date: 20050113
  Transmission Date: 20050727
  Serious: Yes (Other)
  Sender: FDA-Public Use
  Company Number: None

PATIENT
  Age: 35 Year
  Sex: Female

DRUGS (2)
  1. XANAX [Suspect]
     Indication: ANXIETY
     Dosage: 1 MG PO BID
     Route: 048
  2. XANAX [Suspect]
     Indication: DEPRESSION
     Dosage: 1 MG PO BID
     Route: 048

REACTIONS (2)
  - DRUG INEFFECTIVE [None]
  - PHARMACEUTICAL PRODUCT COMPLAINT [None]
